FAERS Safety Report 13498976 (Version 1)
Quarter: 2017Q2

REPORT INFORMATION
  Report Type: Spontaneous
  Country: US (occurrence: US)
  Receive Date: 20170430
  Receipt Date: 20170430
  Transmission Date: 20170830
  Serious: Yes (Life-Threatening, Hospitalization)
  Sender: FDA-Public Use
  Company Number: None

PATIENT
  Age: 68 Year
  Sex: Male
  Weight: 85.5 kg

DRUGS (4)
  1. CLONAZAPAM [Concomitant]
     Active Substance: CLONAZEPAM
  2. CENTRUM OVER 50 [Concomitant]
  3. NORTHERA [Suspect]
     Active Substance: DROXIDOPA
     Indication: POSTURAL ORTHOSTATIC TACHYCARDIA SYNDROME
     Dosage: ?          QUANTITY:126 CAPSULE(S);?
     Route: 048
     Dates: start: 20170322, end: 20170422
  4. CELEXA [Concomitant]
     Active Substance: CITALOPRAM HYDROBROMIDE

REACTIONS (12)
  - Photopsia [None]
  - Electroencephalogram abnormal [None]
  - Muscular weakness [None]
  - Gait disturbance [None]
  - Drug ineffective [None]
  - Dysphagia [None]
  - Visual impairment [None]
  - Dysgeusia [None]
  - Fall [None]
  - Serotonin syndrome [None]
  - Hypoacusis [None]
  - Loss of consciousness [None]

NARRATIVE: CASE EVENT DATE: 20170430
